FAERS Safety Report 5628622-0 (Version None)
Quarter: 2008Q1

REPORT INFORMATION
  Report Type: 
  Country: None (occurrence: None)
  Receive Date: 20080215
  Receipt Date: 20080205
  Transmission Date: 20080703
  Serious: Yes (Other)
  Sender: FDA-Public Use
  Company Number: US-PFIZER INC-2008011580

PATIENT
  Sex: Female
  Weight: 52.2 kg

DRUGS (15)
  1. NEURONTIN [Suspect]
     Indication: NECK PAIN
  2. MONTELUKAST SODIUM [Concomitant]
  3. ADVAIR DISKUS 100/50 [Concomitant]
  4. COMBIVENT [Concomitant]
  5. EVISTA [Concomitant]
  6. WELLBUTRIN [Concomitant]
  7. CLONAZEPAM [Concomitant]
  8. MIRTAZAPINE [Concomitant]
  9. ASPIRIN [Concomitant]
  10. ZETIA [Concomitant]
  11. COZAAR [Concomitant]
  12. PRAVACHOL [Concomitant]
  13. OMEGA-3 TRIGLYCERIDES [Concomitant]
  14. DULCOLAX [Concomitant]
  15. VICODIN [Concomitant]

REACTIONS (1)
  - GLOMERULAR FILTRATION RATE DECREASED [None]
